FAERS Safety Report 13381518 (Version 2)
Quarter: 2017Q2

REPORT INFORMATION
  Report Type: Report from Study
  Country: US (occurrence: US)
  Receive Date: 20170329
  Receipt Date: 20170512
  Transmission Date: 20170830
  Serious: Yes (Other)
  Sender: FDA-Public Use
  Company Number: US-AMGEN-USASL2017047010

PATIENT
  Age: 70 Year
  Sex: Female

DRUGS (2)
  1. PROLIA [Suspect]
     Active Substance: DENOSUMAB
     Indication: OSTEOPOROSIS POSTMENOPAUSAL
     Dosage: 60 MG, Q6MO
     Route: 065
     Dates: start: 201602
  2. ASPIRIN 81 [Concomitant]
     Active Substance: ASPIRIN

REACTIONS (12)
  - Ulcer [Unknown]
  - Dysphagia [Unknown]
  - Feeling abnormal [Unknown]
  - Temporomandibular joint syndrome [Unknown]
  - Musculoskeletal pain [Not Recovered/Not Resolved]
  - Neck pain [Not Recovered/Not Resolved]
  - Jaw disorder [Unknown]
  - Myalgia [Not Recovered/Not Resolved]
  - Hip arthroplasty [Unknown]
  - Bone disorder [Unknown]
  - Hallucination [Unknown]
  - Weight decreased [Unknown]

NARRATIVE: CASE EVENT DATE: 201605
